FAERS Safety Report 12667906 (Version 2)
Quarter: 2016Q3

REPORT INFORMATION
  Report Type: Spontaneous
  Country: BR (occurrence: BR)
  Receive Date: 20160819
  Receipt Date: 20160908
  Transmission Date: 20161109
  Serious: Yes (Other)
  Sender: FDA-Public Use
  Company Number: BR-PFIZER INC-2016387582

PATIENT
  Age: 78 Year
  Sex: Male

DRUGS (6)
  1. RASAGILINE [Suspect]
     Active Substance: RASAGILINE
     Dosage: 1 MG, DAILY
  2. RIVASTIGMINE. [Suspect]
     Active Substance: RIVASTIGMINE
     Dosage: 13.3 MG, DAILY
  3. LEVODOPA/BENSERAZIDE [Suspect]
     Active Substance: BENSERAZIDE\LEVODOPA
     Dosage: UNK
  4. SERTRALINE HCL [Suspect]
     Active Substance: SERTRALINE HYDROCHLORIDE
     Dosage: 75 MG, DAILY
  5. LEVODOPA/BENSERAZIDE [Suspect]
     Active Substance: BENSERAZIDE\LEVODOPA
     Dosage: 200/50 MG (5 TABLETS/DAY)
  6. ENTACAPONE. [Suspect]
     Active Substance: ENTACAPONE
     Dosage: 200 MG (5 TIMES A DAY)

REACTIONS (1)
  - Delusion of replacement [Recovering/Resolving]
